FAERS Safety Report 5468254-0 (Version None)
Quarter: 2007Q3

REPORT INFORMATION
  Report Type: 
  Country: None (occurrence: None)
  Receive Date: 20070921
  Receipt Date: 20070907
  Transmission Date: 20080115
  Serious: Yes (Hospitalization)
  Sender: FDA-Public Use
  Company Number: S07-FRA-05061-01

PATIENT
  Age: 79 Year
  Sex: Female

DRUGS (5)
  1. CITALOPRAM HYDROBROMIDE [Suspect]
     Indication: DEPRESSION
     Dosage: 20 MG BID PO
     Route: 048
     Dates: end: 20070702
  2. URBANYL (CLOBAZAM) [Suspect]
     Indication: ANXIETY
     Dosage: 5 MG TID PO
     Route: 048
     Dates: start: 20070620, end: 20070101
  3. URBANYL (CLOBAZAM) [Suspect]
     Indication: ANXIETY
     Dates: start: 20070101
  4. OXAZEPAM [Suspect]
     Indication: ANXIETY
     Dosage: 10 MG TID PO
     Route: 048
     Dates: start: 20070623, end: 20070626
  5. IXPRIM (PARACETAMOL/TRAMADOL) [Suspect]
     Dates: start: 20070620, end: 20070626

REACTIONS (3)
  - CONFUSIONAL STATE [None]
  - DRUG LEVEL ABOVE THERAPEUTIC [None]
  - INSOMNIA [None]
